FAERS Safety Report 9183164 (Version 1)
Quarter: 2012Q4

REPORT INFORMATION
  Report Type: 
  Country: DE (occurrence: DE)
  Receive Date: 20121030
  Receipt Date: 20121030
  Transmission Date: 20130627
  Serious: Yes (Other)
  Sender: FDA-Public Use
  Company Number: PHHY2012DE096754

PATIENT
  Sex: Female

DRUGS (11)
  1. FORMOTEROL [Suspect]
     Indication: ASTHMA
  2. BECLOMETHASONE [Suspect]
     Indication: ASTHMA
  3. CITALOPRAM [Concomitant]
     Indication: PSYCHOTIC DISORDER
     Dosage: 20 mg/day
  4. QUETIAPINE [Concomitant]
     Indication: PSYCHOTIC DISORDER
     Dosage: 150 mg/day
  5. DOXEPIN [Concomitant]
     Indication: PSYCHOTIC DISORDER
     Dosage: 50 mg/day
  6. REPROTEROL [Concomitant]
     Indication: ASTHMA
  7. CROMOGLICATE [Concomitant]
     Indication: ASTHMA
  8. ETHINYLESTRADIOL [Concomitant]
     Indication: CONTRACEPTION
  9. LEVONORGESTREL [Concomitant]
     Indication: CONTRACEPTION
  10. MADOPAR [Concomitant]
     Indication: RESTLESS LEGS SYNDROME
  11. RESTEX [Concomitant]
     Indication: RESTLESS LEGS SYNDROME

REACTIONS (2)
  - Premature delivery [Unknown]
  - Exposure during pregnancy [Unknown]
